FAERS Safety Report 16771517 (Version 2)
Quarter: 2019Q3

REPORT INFORMATION
  Report Type: Spontaneous
  Country: US (occurrence: US)
  Receive Date: 20190904
  Receipt Date: 20190924
  Transmission Date: 20191005
  Serious: Yes (Hospitalization, Other)
  Sender: FDA-Public Use
  Company Number: US-IGSA-SR10009023

PATIENT
  Age: 75 Year
  Sex: Male
  Weight: 70.31 kg

DRUGS (23)
  1. AMOXICILLIN AND CLAVULANATE POTASSIUM [Concomitant]
     Active Substance: AMOXICILLIN\CLAVULANATE POTASSIUM
  2. PROBIOTIC ACIDOPHILUS XTRA [Concomitant]
  3. PRAVASTATIN SODIUM. [Concomitant]
     Active Substance: PRAVASTATIN SODIUM
  4. VITAMIN D3 [Concomitant]
     Active Substance: CHOLECALCIFEROL
  5. METHYLPREDISOLONE [Concomitant]
     Active Substance: METHYLPREDNISOLONE
  6. NON ASPIRIN [Concomitant]
     Indication: ANALGESIC THERAPY
  7. PROBIOTIC                          /06395501/ [Concomitant]
     Active Substance: BIFIDOBACTERIUM ANIMALIS LACTIS
  8. METHYLPREDNISOL SODIUM SUCCINATE [Concomitant]
     Active Substance: METHYLPREDNISOLONE SODIUM SUCCINATE
  9. CHLORDIAZEPOXIDE HYDROCHLORIDE W/CLIDINIUM [Concomitant]
  10. ASPIRIN. [Concomitant]
     Active Substance: ASPIRIN
  11. ANUSOL HC                          /00028604/ [Concomitant]
  12. GAMUNEX-C [Suspect]
     Active Substance: HUMAN IMMUNOGLOBULIN G
     Indication: MYASTHENIA GRAVIS
     Dosage: 70 G, Q.6WK.
     Route: 042
     Dates: start: 20190705, end: 20190705
  13. ALPRAZOLAM. [Concomitant]
     Active Substance: ALPRAZOLAM
  14. CYANOCOBALAMIN. [Concomitant]
     Active Substance: CYANOCOBALAMIN
  15. EPINEPHRINE. [Concomitant]
     Active Substance: EPINEPHRINE
  16. PYRIDOSTIGMINE BROMIDE. [Concomitant]
     Active Substance: PYRIDOSTIGMINE BROMIDE
  17. ZOLPIDEM TARTRATE. [Concomitant]
     Active Substance: ZOLPIDEM TARTRATE
  18. MULTIVITAMIN                       /00097801/ [Concomitant]
     Active Substance: VITAMINS
  19. PROAIR HFA [Concomitant]
     Active Substance: ALBUTEROL SULFATE
  20. CO Q 10                            /00517201/ [Concomitant]
  21. LACTOBACILLUS [Concomitant]
     Active Substance: LACTOBACILLUS ACIDOPHILUS
  22. TAMSULOSIN HCL [Concomitant]
     Active Substance: TAMSULOSIN HYDROCHLORIDE
  23. CALCIUM CARBONATE W/COLECALCIFEROL//01980901/ [Concomitant]
     Active Substance: CALCIUM CARBONATE\CHOLECALCIFEROL\MAGNESIUM CARBONATE

REACTIONS (3)
  - Urticaria [Recovered/Resolved]
  - Rash [Unknown]
  - Pruritus [Unknown]

NARRATIVE: CASE EVENT DATE: 20190705
